FAERS Safety Report 9018370 (Version 1)
Quarter: 2013Q1

REPORT INFORMATION
  Report Type: Spontaneous
  Country: US (occurrence: None)
  Receive Date: 20130111
  Receipt Date: 20130111
  Transmission Date: 20140127
  Serious: Yes (Hospitalization)
  Sender: FDA-Public Use
  Company Number: None

PATIENT
  Sex: Male
  Weight: 84.7 kg

DRUGS (1)
  1. OSELTAMIVIR [Suspect]
     Dosage: 75MG BID PO
     Route: 048
     Dates: start: 20121225, end: 20121225

REACTIONS (4)
  - Sepsis [None]
  - Unresponsive to stimuli [None]
  - Anaphylactic reaction [None]
  - Bacterial infection [None]
